FAERS Safety Report 10424825 (Version 2)
Quarter: 2014Q3

REPORT INFORMATION
  Report Type: Report from Study
  Country: BR (occurrence: BR)
  Receive Date: 20140902
  Receipt Date: 20140902
  Transmission Date: 20150326
  Serious: Yes (Hospitalization, Other)
  Sender: FDA-Public Use
  Company Number: BR-ABBVIE-11P-020-0886222-00

PATIENT
  Age: 60 Year
  Sex: Female
  Weight: 49 kg

DRUGS (5)
  1. HUMIRA [Suspect]
     Active Substance: ADALIMUMAB
     Route: 058
     Dates: start: 201205, end: 20140817
  2. HUMIRA [Suspect]
     Active Substance: ADALIMUMAB
     Indication: CROHN^S DISEASE
     Dosage: 4 INJECTIONS IN ONE DAY
     Route: 058
     Dates: start: 20110201, end: 20110201
  3. HUMIRA [Suspect]
     Active Substance: ADALIMUMAB
     Route: 058
     Dates: start: 201202
  4. HUMIRA [Suspect]
     Active Substance: ADALIMUMAB
     Dosage: 2 INJECTIONS IN ONE DAY
     Route: 058
  5. UNKNOWN HOMEOPATHIC DRUG [Concomitant]
     Indication: DEPRESSION

REACTIONS (26)
  - Pleural effusion [Recovering/Resolving]
  - Erythema [Recovered/Resolved]
  - Fatigue [Recovering/Resolving]
  - Abdominal pain [Recovering/Resolving]
  - Abdominal pain [Recovering/Resolving]
  - Intestinal stenosis [Unknown]
  - Intestinal fistula [Unknown]
  - Pyrexia [Unknown]
  - Weight decreased [Recovered/Resolved]
  - Gastrointestinal infection [Recovering/Resolving]
  - Crohn^s disease [Recovering/Resolving]
  - Local swelling [Recovering/Resolving]
  - Urinary tract infection [Recovering/Resolving]
  - Enteritis [Not Recovered/Not Resolved]
  - Unevaluable event [Unknown]
  - Local swelling [Recovered/Resolved]
  - Application site hypersensitivity [Recovered/Resolved]
  - Abdominal pain [Unknown]
  - Large intestinal stenosis [Unknown]
  - Back pain [Recovered/Resolved]
  - Postoperative wound complication [Unknown]
  - Asthenia [Recovering/Resolving]
  - Inflammation [Recovering/Resolving]
  - Wound secretion [Not Recovered/Not Resolved]
  - Drug ineffective [Unknown]
  - Ileal stenosis [Unknown]

NARRATIVE: CASE EVENT DATE: 201112
